FAERS Safety Report 23795180 (Version 1)
Quarter: 2024Q2

REPORT INFORMATION
  Report Type: Spontaneous
  Country: SE (occurrence: SE)
  Receive Date: 20240429
  Receipt Date: 20240429
  Transmission Date: 20240716
  Serious: Yes (Hospitalization)
  Sender: FDA-Public Use
  Company Number: None

PATIENT
  Age: 70 Year
  Sex: Male

DRUGS (23)
  1. LOSARTAN [Suspect]
     Active Substance: LOSARTAN
     Indication: Hypertension
     Dosage: 1X1
     Route: 048
     Dates: start: 20240316, end: 20240322
  2. DAPAGLIFLOZIN [Concomitant]
     Active Substance: DAPAGLIFLOZIN
     Indication: Product used for unknown indication
     Dosage: 1 TABLET 1 TIME DAILY
     Route: 065
     Dates: start: 20230906
  3. SPIRONOLACTONE [Concomitant]
     Active Substance: SPIRONOLACTONE
     Indication: Product used for unknown indication
     Route: 065
  4. OCULENTUM SIMPLEX [Concomitant]
     Indication: Product used for unknown indication
     Dosage: 1 STRING OF OINTMENT AT NIGHT FOR 2 WEEKS IN THE LEFT EYE, OCULENTUM SIMPLEX APL
     Route: 065
     Dates: start: 20240315
  5. CLEMASTINE FUMARATE [Concomitant]
     Active Substance: CLEMASTINE FUMARATE
     Indication: Product used for unknown indication
     Dosage: ETC
     Dates: start: 20190821
  6. Betolvex [Concomitant]
     Indication: Product used for unknown indication
     Dosage: 1 TABLET 1 TIME DAILY
     Route: 065
     Dates: start: 20190821
  7. ELIQUIS [Concomitant]
     Active Substance: APIXABAN
     Indication: Product used for unknown indication
     Dosage: 1 TABLET 2 TIMES DAILY
     Route: 065
     Dates: start: 20190129
  8. PREDNISOLONE [Concomitant]
     Active Substance: PREDNISOLONE
     Indication: Product used for unknown indication
     Dosage: 2 TABLETS 1 TIME DAILY
     Route: 065
     Dates: start: 20231017
  9. METFORMIN [Concomitant]
     Active Substance: METFORMIN HYDROCHLORIDE
     Indication: Product used for unknown indication
     Dosage: 1 TABLET FOR BREAKFAST
     Route: 065
     Dates: start: 20220314
  10. OZEMPIC [Concomitant]
     Active Substance: SEMAGLUTIDE
     Indication: Product used for unknown indication
     Dosage: 1 MG WEEKLY SUBCUTANEOUS INJECTION
     Route: 058
     Dates: start: 20210728
  11. DULOXETINE [Concomitant]
     Active Substance: DULOXETINE
     Indication: Product used for unknown indication
     Dosage: 2 CAPSULES 1 TIME DAILY
     Route: 065
     Dates: start: 20210729
  12. CALCIUM CARBONATE\CHOLECALCIFEROL [Concomitant]
     Active Substance: CALCIUM CARBONATE\CHOLECALCIFEROL
     Indication: Product used for unknown indication
     Dosage: 1 CHEWABLE TABLET ONCE DAILY, KALCIPOS-D FORTE
     Route: 065
     Dates: start: 20180913
  13. OMEPRAZOLE [Concomitant]
     Active Substance: OMEPRAZOLE
     Indication: Product used for unknown indication
     Dosage: 1-2 CAPSULES 1 TIME DAILY
     Route: 065
     Dates: start: 20230727
  14. EMOVAT [Concomitant]
     Indication: Product used for unknown indication
     Dosage: ETC
     Route: 065
     Dates: start: 20210120
  15. Furix [Concomitant]
     Indication: Product used for unknown indication
     Dosage: ETC
     Route: 065
     Dates: start: 20240104
  16. ACETAMINOPHEN [Concomitant]
     Active Substance: ACETAMINOPHEN
     Indication: Product used for unknown indication
     Dosage: TIME INTERVAL: 0.33333333 DAYS: 2 TABLETS 3 TIMES DAILY
     Route: 065
     Dates: start: 20190820
  17. ALLOPURINOL [Concomitant]
     Active Substance: ALLOPURINOL
     Indication: Product used for unknown indication
     Dosage: 1 TABLET 1 TIME DAILY
     Route: 065
     Dates: start: 20190912
  18. IMDUR [Concomitant]
     Active Substance: ISOSORBIDE MONONITRATE
     Indication: Product used for unknown indication
     Route: 065
     Dates: start: 20240229
  19. UREA [Concomitant]
     Active Substance: UREA
     Indication: Product used for unknown indication
     Dosage: 1 APPLICATION 2 TIMES DAILY
     Route: 065
     Dates: start: 20180430
  20. GABAPENTIN [Concomitant]
     Active Substance: GABAPENTIN
     Indication: Product used for unknown indication
     Dosage: 1 CAPSULE FOR BREAKFAST, 1 CAPSULE FOR LUNCH AND 2 FURTHER CAPSULES AT NIGHT, GABAPENTIN RIVOPHARM
     Route: 065
     Dates: start: 20210728
  21. ROSUVASTATIN [Concomitant]
     Active Substance: ROSUVASTATIN
     Indication: Product used for unknown indication
     Dosage: 1 TABLET 1 TIME DAILY
     Route: 065
     Dates: start: 20231017
  22. ALENDRONATE [Concomitant]
     Active Substance: ALENDRONATE SODIUM
     Indication: Product used for unknown indication
     Dosage: ACCORDING TO SCHEDULE, WEEKLY TABLET
     Route: 065
     Dates: start: 20180914
  23. METOPROLOL [Concomitant]
     Active Substance: METOPROLOL
     Indication: Product used for unknown indication
     Route: 065
     Dates: start: 20240108

REACTIONS (5)
  - Orthostatic hypotension [Recovering/Resolving]
  - Hypotension [Recovered/Resolved]
  - Balance disorder [Recovering/Resolving]
  - Dizziness [Recovering/Resolving]
  - Fall [Recovering/Resolving]

NARRATIVE: CASE EVENT DATE: 20240318
